FAERS Safety Report 16848744 (Version 4)
Quarter: 2021Q1

REPORT INFORMATION
  Report Type: Report from Study
  Country: TW (occurrence: TW)
  Receive Date: 20190925
  Receipt Date: 20210224
  Transmission Date: 20210419
  Serious: Yes (Life-Threatening)
  Sender: FDA-Public Use
  Company Number: TW-ROCHE-2419583

PATIENT
  Age: 68 Year
  Sex: Male
  Weight: 53.8 kg

DRUGS (63)
  1. PALONOSETRON. [Concomitant]
     Active Substance: PALONOSETRON HYDROCHLORIDE
     Dates: start: 20190429
  2. PREDNISOLONE. [Concomitant]
     Active Substance: PREDNISOLONE
     Dates: start: 20190724, end: 20190726
  3. GRANISETRON [Concomitant]
     Active Substance: GRANISETRON
     Dates: start: 20190703, end: 20190703
  4. GRANISETRON [Concomitant]
     Active Substance: GRANISETRON
     Dates: start: 20190904, end: 20190904
  5. ACETAMINOPHEN. [Concomitant]
     Active Substance: ACETAMINOPHEN
     Dates: start: 20190612, end: 20190613
  6. RO6874281 (FAP IL2V MAB) [Suspect]
     Active Substance: SIMLUKAFUSP ALFA
     Indication: SQUAMOUS CELL CARCINOMA
     Dosage: DATE OF MOST RECENT DOSE OF RO6874281 (FAP IL2V MAB) 10 MG ADMINISTERED PRIOR TO EVENT ONSET: 03/JUL
     Route: 042
     Dates: start: 20190612
  7. DEXAMETHASONE. [Concomitant]
     Active Substance: DEXAMETHASONE
     Dates: start: 20190429
  8. FAMOTIDINE. [Concomitant]
     Active Substance: FAMOTIDINE
     Dates: start: 20190612, end: 20190612
  9. FAMOTIDINE. [Concomitant]
     Active Substance: FAMOTIDINE
     Dates: start: 20190703, end: 20190703
  10. FAMOTIDINE. [Concomitant]
     Active Substance: FAMOTIDINE
     Dates: start: 20190904, end: 20190904
  11. SILODOSIN. [Concomitant]
     Active Substance: SILODOSIN
     Dates: start: 20190618
  12. DESMOPRESSIN [Concomitant]
     Active Substance: DESMOPRESSIN
     Indication: NOCTURIA
     Dates: start: 20190610
  13. ATEZOLIZUMAB. [Suspect]
     Active Substance: ATEZOLIZUMAB
     Indication: SQUAMOUS CELL CARCINOMA
     Dosage: DATE OF MOST RECENT DOSE OF ATEZOLIZUMAB (1200 MG) ADMINISTERED PRIOR TO EVENT ONSET: 03/JUL/2019 AT
     Route: 041
     Dates: start: 20190612
  14. LORAZEPAM. [Concomitant]
     Active Substance: LORAZEPAM
     Dates: start: 20190522
  15. DIPHENHYDRAMINE. [Concomitant]
     Active Substance: DIPHENHYDRAMINE
     Dates: start: 20190703, end: 20190703
  16. DIPHENHYDRAMINE. [Concomitant]
     Active Substance: DIPHENHYDRAMINE
     Dates: start: 20190925, end: 20190925
  17. DIPHENHYDRAMINE. [Concomitant]
     Active Substance: DIPHENHYDRAMINE
     Dates: start: 20191016, end: 20191016
  18. ELOMET [Concomitant]
     Active Substance: MOMETASONE FUROATE
     Indication: DRUG ERUPTION
     Dates: start: 20190519
  19. ULTRACET [Concomitant]
     Active Substance: ACETAMINOPHEN\TRAMADOL HYDROCHLORIDE
     Dates: start: 20190512
  20. GRANISETRON [Concomitant]
     Active Substance: GRANISETRON
     Dates: start: 20190814, end: 20190814
  21. ACETAMINOPHEN. [Concomitant]
     Active Substance: ACETAMINOPHEN
     Dates: start: 20190814, end: 20190815
  22. BROTIZOLAM [Concomitant]
     Active Substance: BROTIZOLAM
     Indication: INSOMNIA
     Dates: start: 20191003, end: 20191006
  23. SENNOSIDE A+B [Concomitant]
     Active Substance: SENNOSIDES A AND B
     Dates: start: 20191005, end: 20191006
  24. DIPHENHYDRAMINE. [Concomitant]
     Active Substance: DIPHENHYDRAMINE
     Dates: start: 20190724, end: 20190724
  25. SILODOSIN. [Concomitant]
     Active Substance: SILODOSIN
     Indication: NOCTURIA
     Dates: start: 20190612
  26. ACETAMINOPHEN. [Concomitant]
     Active Substance: ACETAMINOPHEN
     Dates: start: 20190727, end: 20190729
  27. SENNOSIDE A+B [Concomitant]
     Active Substance: SENNOSIDES A AND B
     Dates: start: 20190902, end: 20190922
  28. DIPHENHYDRAMINE. [Concomitant]
     Active Substance: DIPHENHYDRAMINE
     Dates: start: 20190612, end: 20190612
  29. FAMOTIDINE. [Concomitant]
     Active Substance: FAMOTIDINE
     Dates: start: 20190724, end: 20190724
  30. MAGNESIUM OXIDE. [Concomitant]
     Active Substance: MAGNESIUM OXIDE
     Dates: start: 20190522
  31. GRANISETRON [Concomitant]
     Active Substance: GRANISETRON
     Indication: PREMEDICATION
     Dates: start: 20190612, end: 20190612
  32. GRANISETRON [Concomitant]
     Active Substance: GRANISETRON
     Dates: start: 20191016, end: 20191016
  33. ACETAMINOPHEN. [Concomitant]
     Active Substance: ACETAMINOPHEN
     Dates: start: 20190925, end: 20190926
  34. SENNAPUR [Concomitant]
     Dates: start: 20190902
  35. TRIAMCINOLONE [Concomitant]
     Active Substance: TRIAMCINOLONE
     Indication: MUCOSAL INFLAMMATION
     Dates: start: 20191014
  36. DIPHENHYDRAMINE. [Concomitant]
     Active Substance: DIPHENHYDRAMINE
     Dates: start: 20190814, end: 20190814
  37. FAMOTIDINE. [Concomitant]
     Active Substance: FAMOTIDINE
     Indication: PREMEDICATION
     Dates: start: 20190502
  38. FAMOTIDINE. [Concomitant]
     Active Substance: FAMOTIDINE
     Dates: start: 20190814, end: 20190814
  39. FAMOTIDINE. [Concomitant]
     Active Substance: FAMOTIDINE
     Dates: start: 20190925, end: 20190925
  40. TRAMADOL. [Concomitant]
     Active Substance: TRAMADOL
     Dates: start: 20190709, end: 20190709
  41. GRANISETRON [Concomitant]
     Active Substance: GRANISETRON
     Dates: start: 20190925, end: 20190925
  42. ACETAMINOPHEN. [Concomitant]
     Active Substance: ACETAMINOPHEN
     Indication: PREMEDICATION
     Dates: start: 20190703, end: 20190704
  43. MOMETASONE [Concomitant]
     Active Substance: MOMETASONE
     Indication: RASH
     Dates: start: 20190902, end: 20190908
  44. SENNOSIDE A+B [Concomitant]
     Active Substance: SENNOSIDES A AND B
     Indication: CONSTIPATION
     Dates: start: 20190512
  45. FAMOTIDINE. [Concomitant]
     Active Substance: FAMOTIDINE
     Dates: start: 20191016, end: 20191016
  46. METOCLOPRAMIDE. [Concomitant]
     Active Substance: METOCLOPRAMIDE
     Dates: start: 20190406
  47. PREDNISOLONE. [Concomitant]
     Active Substance: PREDNISOLONE
     Dates: start: 20190814, end: 20190816
  48. PREDNISOLONE. [Concomitant]
     Active Substance: PREDNISOLONE
     Dates: start: 20190703, end: 20190705
  49. NINCORT [Concomitant]
     Indication: MUCOSAL INFLAMMATION
     Route: 048
     Dates: start: 20190707
  50. BISACODYL. [Concomitant]
     Active Substance: BISACODYL
     Indication: CONSTIPATION
     Dates: start: 20190618
  51. ACETAMINOPHEN. [Concomitant]
     Active Substance: ACETAMINOPHEN
     Dates: start: 20191016
  52. LORAZEPAM. [Concomitant]
     Active Substance: LORAZEPAM
     Indication: INSOMNIA
     Dates: start: 20190512
  53. LORAZEPAM. [Concomitant]
     Active Substance: LORAZEPAM
     Dates: start: 20190617, end: 20190630
  54. DIPHENHYDRAMINE. [Concomitant]
     Active Substance: DIPHENHYDRAMINE
     Indication: PREMEDICATION
     Dates: start: 20190429
  55. METOCLOPRAMIDE. [Concomitant]
     Active Substance: METOCLOPRAMIDE
     Dates: start: 20190429
  56. ELOMET [Concomitant]
     Active Substance: MOMETASONE FUROATE
     Indication: RASH
     Dates: start: 20190614, end: 20190620
  57. PREDNISOLONE. [Concomitant]
     Active Substance: PREDNISOLONE
     Dates: start: 20190502
  58. TRAMADOL. [Concomitant]
     Active Substance: TRAMADOL
     Dates: start: 20190604, end: 20190604
  59. DESMOPRESSIN [Concomitant]
     Active Substance: DESMOPRESSIN
     Indication: CONSTIPATION
     Dates: start: 20190610, end: 20190619
  60. GRANISETRON [Concomitant]
     Active Substance: GRANISETRON
     Dates: start: 20190724, end: 20190724
  61. ACETAMINOPHEN. [Concomitant]
     Active Substance: ACETAMINOPHEN
     Dates: start: 20190724, end: 20190725
  62. TRANEXAMIC ACID. [Concomitant]
     Active Substance: TRANEXAMIC ACID
     Dates: start: 20190709, end: 20190712
  63. SENNAPUR [Concomitant]
     Indication: CONSTIPATION
     Dates: start: 20190722, end: 20190811

REACTIONS (1)
  - White blood cell count decreased [Recovered/Resolved]

NARRATIVE: CASE EVENT DATE: 20190704
